FAERS Safety Report 20848310 (Version 1)
Quarter: 2022Q2

REPORT INFORMATION
  Report Type: Report from Study
  Country: US (occurrence: US)
  Receive Date: 20220519
  Receipt Date: 20220519
  Transmission Date: 20220721
  Serious: Yes (Other)
  Sender: FDA-Public Use
  Company Number: US-CELGENE-USA-20220206466

PATIENT
  Age: 66 Year
  Sex: Male
  Weight: 77.111 kg

DRUGS (3)
  1. REVLIMID [Suspect]
     Active Substance: LENALIDOMIDE
     Indication: Plasma cell myeloma
     Dosage: 25 MILLIGRAM, EXPIRY DATE: 31-MAY-2024
     Route: 048
     Dates: start: 20220113
  2. ZOMETA [Suspect]
     Active Substance: ZOLEDRONIC ACID
     Indication: Product used for unknown indication
     Route: 065
  3. REMICADE [Concomitant]
     Active Substance: INFLIXIMAB
     Indication: Colitis ulcerative
     Dosage: FREQUENCY TEXT: EVERY 6 WEEKS
     Route: 065

REACTIONS (11)
  - Tendonitis [Unknown]
  - Memory impairment [Unknown]
  - White blood cell count decreased [Unknown]
  - Red blood cell count decreased [Unknown]
  - Fatigue [Unknown]
  - Dry skin [Unknown]
  - Pain [Unknown]
  - Headache [Unknown]
  - Skin cancer [Unknown]
  - Gait disturbance [Unknown]
  - Off label use [Not Recovered/Not Resolved]

NARRATIVE: CASE EVENT DATE: 20220101
